FAERS Safety Report 6868219-8 (Version None)
Quarter: 2010Q3

REPORT INFORMATION
  Report Type: 
  Country: None (occurrence: None)
  Receive Date: 20100722
  Receipt Date: 20080520
  Transmission Date: 20110219
  Serious: Yes (Other)
  Sender: FDA-Public Use
  Company Number: US-PFIZER INC-2008044675

PATIENT
  Sex: Male
  Weight: 145.2 kg

DRUGS (10)
  1. CHANTIX [Suspect]
     Indication: SMOKING CESSATION THERAPY
     Dates: start: 20080516
  2. METFORMIN [Concomitant]
  3. TOPROL-XL [Concomitant]
  4. PLAVIX [Concomitant]
  5. PROTONIX [Concomitant]
  6. ACETYLSALICYLIC ACID [Concomitant]
  7. ENALAPRIL MALEATE [Concomitant]
  8. GLIPIZIDE [Concomitant]
  9. LOVASTATIN [Concomitant]
  10. INSULIN [Concomitant]

REACTIONS (1)
  - DYSPNOEA [None]
